FAERS Safety Report 8018733-7 (Version None)
Quarter: 2012Q1

REPORT INFORMATION
  Report Type: 
  Country: None (occurrence: None)
  Receive Date: 20120103
  Receipt Date: 20120103
  Transmission Date: 20120608
  Serious: No
  Sender: FDA-Public Use
  Company Number: None

PATIENT
  Age: 33 Year
  Sex: Male
  Weight: 77.11 kg

DRUGS (2)
  1. LOVASTATIN [Suspect]
     Indication: HYPERLIPIDAEMIA
     Dosage: 20, 40 MG
     Route: 048
     Dates: start: 20060101, end: 20070501
  2. SIMVASTATIN [Concomitant]
     Indication: HYPERLIPIDAEMIA
     Dosage: 20, 40 MG
     Route: 048
     Dates: start: 20070501, end: 20100401

REACTIONS (10)
  - HEADACHE [None]
  - PAIN IN EXTREMITY [None]
  - ARTHRALGIA [None]
  - NEUROPATHY PERIPHERAL [None]
  - MUSCLE SPASMS [None]
  - MUSCLE TWITCHING [None]
  - BACK PAIN [None]
  - DEMYELINATION [None]
  - PAIN [None]
  - TENDON CALCIFICATION [None]
